FAERS Safety Report 6135382-6 (Version None)
Quarter: 2009Q1

REPORT INFORMATION
  Report Type: 
  Country: None (occurrence: None)
  Receive Date: 20090327
  Receipt Date: 20090318
  Transmission Date: 20090719
  Serious: Yes (Death, Other)
  Sender: FDA-Public Use
  Company Number: NL-JNJFOC-20040900813

PATIENT
  Age: 11 Year
  Sex: Male

DRUGS (3)
  1. INFLIXIMAB [Suspect]
     Indication: CROHN'S DISEASE
     Route: 042
  2. AZATHIOPRINE [Suspect]
     Indication: CROHN'S DISEASE
  3. STEROIDS [Concomitant]
     Indication: CROHN'S DISEASE

REACTIONS (4)
  - ABSCESS [None]
  - BACTERIAL SEPSIS [None]
  - LEUKOPENIA [None]
  - MULTI-ORGAN FAILURE [None]
